FAERS Safety Report 10012539 (Version 1)
Quarter: 2014Q1

REPORT INFORMATION
  Report Type: Spontaneous
  Country: FR (occurrence: FR)
  Receive Date: 20140314
  Receipt Date: 20140314
  Transmission Date: 20141002
  Serious: Yes (Hospitalization)
  Sender: FDA-Public Use
  Company Number: FR-B.I. PHARMACEUTICALS,INC./RIDGEFIELD-2014-BI-10330FF

PATIENT
  Sex: Male
  Weight: 67 kg

DRUGS (7)
  1. SIFROL [Suspect]
     Indication: PRODUCT USED FOR UNKNOWN INDICATION
     Route: 048
  2. MODOPAR [Suspect]
     Indication: PARKINSON^S DISEASE
     Route: 048
  3. SINEMET [Suspect]
     Indication: PRODUCT USED FOR UNKNOWN INDICATION
     Route: 048
  4. APROVEL [Concomitant]
     Route: 065
  5. LANTUS [Concomitant]
     Route: 065
  6. NOVONORM [Concomitant]
     Route: 065
  7. METFORMINE [Concomitant]
     Route: 065

REACTIONS (2)
  - Muscular weakness [Not Recovered/Not Resolved]
  - Vertigo [Not Recovered/Not Resolved]
